FAERS Safety Report 23177197 (Version 1)
Quarter: 2023Q4

REPORT INFORMATION
  Report Type: Spontaneous
  Country: US (occurrence: US)
  Receive Date: 20231113
  Receipt Date: 20231113
  Transmission Date: 20240109
  Serious: No
  Sender: FDA-Public Use
  Company Number: US-BEH-2023165184

PATIENT
  Sex: Female

DRUGS (1)
  1. HIZENTRA [Suspect]
     Active Substance: HUMAN IMMUNOGLOBULIN G
     Dosage: UNK UNK, QW
     Route: 065

REACTIONS (4)
  - Injection site nodule [Unknown]
  - Injection site induration [Unknown]
  - Injection site erythema [Unknown]
  - Injection site pain [Unknown]
